FAERS Safety Report 7513284-8 (Version None)
Quarter: 2011Q2

REPORT INFORMATION
  Report Type: 
  Country: None (occurrence: None)
  Receive Date: 20110531
  Receipt Date: 20110525
  Transmission Date: 20111010
  Serious: Yes (Death)
  Sender: FDA-Public Use
  Company Number: US-ASTRAZENECA-2011SE32055

PATIENT
  Age: 70 Year
  Sex: Male

DRUGS (1)
  1. VIMOVO [Suspect]
     Indication: ANGINA PECTORIS
     Dosage: 500 MG/20 MG
     Route: 048

REACTIONS (1)
  - MYOCARDIAL INFARCTION [None]
